FAERS Safety Report 7730317-4 (Version None)
Quarter: 2011Q3

REPORT INFORMATION
  Report Type: 
  Country: None (occurrence: None)
  Receive Date: 20110906
  Receipt Date: 20110823
  Transmission Date: 20111222
  Serious: Yes (Hospitalization, Other)
  Sender: FDA-Public Use
  Company Number: US-ELI_LILLY_AND_COMPANY-US201012005034

PATIENT
  Sex: Female

DRUGS (3)
  1. FORTEO [Suspect]
     Dosage: 20 UG, QD
     Route: 065
  2. CORTISONE ACETATE [Concomitant]
     Indication: PAIN
  3. FORTEO [Suspect]
     Indication: OSTEOPOROSIS
     Dosage: 20 UG, DAILY (1/D)
     Route: 065

REACTIONS (9)
  - BRONCHITIS [None]
  - MYALGIA [None]
  - HYPOAESTHESIA [None]
  - PAIN [None]
  - JOINT DISLOCATION [None]
  - DYSPHONIA [None]
  - FALL [None]
  - HIP FRACTURE [None]
  - MUSCLE SPASMS [None]
